FAERS Safety Report 6806806-3 (Version None)
Quarter: 2010Q2

REPORT INFORMATION
  Report Type: 
  Country: None (occurrence: None)
  Receive Date: 20100629
  Receipt Date: 20080429
  Transmission Date: 20101027
  Serious: No
  Sender: FDA-Public Use
  Company Number: US-PFIZER INC-2008031513

PATIENT
  Sex: Male

DRUGS (4)
  1. VIAGRA [Suspect]
  2. TYLENOL PM [Concomitant]
  3. WARFARIN SODIUM [Concomitant]
  4. DIGOXIN [Concomitant]
     Indication: HEART RATE IRREGULAR

REACTIONS (2)
  - DRUG EFFECT DECREASED [None]
  - EXPIRED DRUG ADMINISTERED [None]
